FAERS Safety Report 21007529 (Version 2)
Quarter: 2022Q3

REPORT INFORMATION
  Report Type: Spontaneous
  Country: US (occurrence: US)
  Receive Date: 20220626
  Receipt Date: 20220822
  Transmission Date: 20221026
  Serious: Yes (Other)
  Sender: FDA-Public Use
  Company Number: US-JNJFOC-20220640754

PATIENT
  Age: 6 Decade
  Sex: Female

DRUGS (5)
  1. ELMIRON [Suspect]
     Active Substance: PENTOSAN POLYSULFATE SODIUM
     Indication: Cystitis interstitial
     Route: 048
     Dates: start: 200412, end: 202106
  2. AMITRIPTYLINE [Concomitant]
     Active Substance: AMITRIPTYLINE
     Indication: Cystitis interstitial
     Dates: start: 20060404, end: 20210921
  3. FLUTICASONE [Concomitant]
     Active Substance: FLUTICASONE
     Indication: Inflammation
     Dates: start: 20060206, end: 20210907
  4. CORTISPORIN [BACITRACIN;HYDROCORTISONE;NEOMYCIN SULFATE;POLYMYXIN B SU [Concomitant]
     Indication: Ear disorder
     Route: 065
     Dates: start: 20060206, end: 20171002
  5. AMOXICILLIN/CLAVULANIC ACID [AMOXICILLIN SODIUM;CLAVULANATE POTASSIUM] [Concomitant]
     Indication: Sinusitis
     Dates: start: 2007, end: 2021

REACTIONS (1)
  - Retinal injury [Unknown]

NARRATIVE: CASE EVENT DATE: 20110101
